FAERS Safety Report 8833781 (Version 2)
Quarter: 2012Q4

REPORT INFORMATION
  Report Type: Spontaneous
  Country: GB (occurrence: None)
  Receive Date: 20121005
  Receipt Date: 20121024
  Transmission Date: 20130627
  Serious: Yes (Life-Threatening, Hospitalization, Other)
  Sender: FDA-Public Use
  Company Number: 2012-01423

PATIENT
  Age: 66 Year
  Sex: Male
  Weight: 120 kg

DRUGS (6)
  1. LISINOPRIL [Suspect]
     Indication: HYPERTENSION
     Route: 048
     Dates: start: 20070503, end: 20120910
  2. METFORMIN [Suspect]
     Indication: TYPE II DIABETES MELLITUS
     Route: 048
     Dates: start: 19990722, end: 20110910
  3. ASPIRIN [Concomitant]
  4. BENDROFLUMETHIAZIDE (BENDROFLUMETHIAZID) [Concomitant]
  5. OMEPRAZOLE (OMEPRAZOL) [Concomitant]
  6. SIMVASTATIN (UNKNOWN) (SIMVASTATIN) [Concomitant]

REACTIONS (6)
  - Diarrhoea [None]
  - Hypotension [None]
  - Renal impairment [None]
  - Lactic acidosis [None]
  - Metabolic acidosis [None]
  - Syncope [None]
